FAERS Safety Report 9344566 (Version 1)
Quarter: 2013Q2

REPORT INFORMATION
  Report Type: Spontaneous
  Country: US (occurrence: US)
  Receive Date: 20130612
  Receipt Date: 20130612
  Transmission Date: 20140414
  Serious: No
  Sender: FDA-Public Use
  Company Number: US-PFIZER INC-2013175880

PATIENT
  Age: 61 Year
  Sex: Male
  Weight: 99.77 kg

DRUGS (1)
  1. LYRICA [Suspect]
     Indication: MIGRAINE
     Dosage: 150 MG, 2X/DAY (150MG IN AM AND 150MG IN EVENING)
     Route: 048
     Dates: start: 2012

REACTIONS (3)
  - Off label use [Unknown]
  - Migraine [Unknown]
  - Therapeutic response unexpected [Unknown]
